FAERS Safety Report 17943660 (Version 1)
Quarter: 2020Q2

REPORT INFORMATION
  Report Type: Spontaneous
  Country: PL (occurrence: PL)
  Receive Date: 20200625
  Receipt Date: 20200625
  Transmission Date: 20200714
  Serious: Yes (Hospitalization)
  Sender: FDA-Public Use
  Company Number: PL-ASTRAZENECA-2020SE79989

PATIENT
  Age: 32 Year
  Sex: Male

DRUGS (7)
  1. PERAZINE [Interacting]
     Active Substance: PERAZINE
     Indication: SLEEP DISORDER
     Route: 065
  2. METAMIZOLE [Interacting]
     Active Substance: METAMIZOLE
     Route: 065
  3. ESOMEPRAZOLE. [Suspect]
     Active Substance: ESOMEPRAZOLE MAGNESIUM
     Route: 065
  4. PROMETHAZINE [Interacting]
     Active Substance: PROMETHAZINE HYDROCHLORIDE
     Route: 065
  5. DEXTROMETHORPHAN [Interacting]
     Active Substance: DEXTROMETHORPHAN
     Route: 065
  6. PARACETAMOL + PSEUDOEPHEDRINE + CHLORPHENAMINE [Interacting]
     Active Substance: ACETAMINOPHEN\CHLORPHENIRAMINE\PSEUDOEPHEDRINE
     Route: 065
  7. ESCITALOPRAM [Interacting]
     Active Substance: ESCITALOPRAM OXALATE
     Indication: DEPRESSION
     Route: 065

REACTIONS (2)
  - Serotonin syndrome [Recovered/Resolved]
  - Drug interaction [Unknown]
